FAERS Safety Report 19291273 (Version 1)
Quarter: 2021Q2

REPORT INFORMATION
  Report Type: Spontaneous
  Country: GB (occurrence: GB)
  Receive Date: 20210523
  Receipt Date: 20210523
  Transmission Date: 20210717
  Serious: Yes (Other)
  Sender: FDA-Public Use
  Company Number: GB-JNJFOC-20210522660

PATIENT
  Age: 66 Year
  Sex: Male

DRUGS (5)
  1. SALBUTAMOL [Concomitant]
     Active Substance: ALBUTEROL
     Indication: ILL-DEFINED DISORDER
  2. DIGOXIN. [Concomitant]
     Active Substance: DIGOXIN
     Indication: ILL-DEFINED DISORDER
  3. BISOPROLOL [Concomitant]
     Active Substance: BISOPROLOL
     Indication: ILL-DEFINED DISORDER
  4. XARELTO [Suspect]
     Active Substance: RIVAROXABAN
     Indication: DEEP VEIN THROMBOSIS
     Route: 048
  5. LANSOPRAZOL [Concomitant]
     Active Substance: LANSOPRAZOLE
     Indication: ILL-DEFINED DISORDER

REACTIONS (1)
  - Deep vein thrombosis [Recovering/Resolving]
